FAERS Safety Report 5194317-3 (Version None)
Quarter: 2006Q4

REPORT INFORMATION
  Report Type: 
  Country: None (occurrence: None)
  Receive Date: 20061228
  Receipt Date: 20060822
  Transmission Date: 20070319
  Serious: Yes (Other)
  Sender: FDA-Public Use
  Company Number: DE-SHR-DE-2006-024354

PATIENT
  Sex: Male

DRUGS (1)
  1. BETAFERON [Suspect]
     Route: 058
     Dates: start: 20060101

REACTIONS (4)
  - ANOREXIA [None]
  - DEPRESSION [None]
  - FATIGUE [None]
  - WEIGHT DECREASED [None]
